FAERS Safety Report 15554311 (Version 2)
Quarter: 2018Q4

REPORT INFORMATION
  Report Type: Spontaneous
  Country: US (occurrence: US)
  Receive Date: 20181026
  Receipt Date: 20181031
  Transmission Date: 20190205
  Serious: No
  Sender: FDA-Public Use
  Company Number: US-PFIZER INC-2018432681

PATIENT
  Age: 84 Year
  Sex: Female
  Weight: 90 kg

DRUGS (4)
  1. PREMARIN [Suspect]
     Active Substance: ESTROGENS, CONJUGATED
     Indication: VULVOVAGINAL BURNING SENSATION
     Dosage: UNK, 1X/DAY (ONCE AT NIGHT TIME)
     Route: 067
     Dates: start: 201810
  2. PRILOSEC [OMEPRAZOLE] [Concomitant]
     Indication: HIATUS HERNIA
  3. PRILOSEC [OMEPRAZOLE] [Concomitant]
     Indication: GASTROOESOPHAGEAL REFLUX DISEASE
  4. PRILOSEC [OMEPRAZOLE] [Concomitant]
     Indication: DYSPEPSIA
     Dosage: 20 MG, 1X/DAY (ONCE IN THE MORNING)
     Route: 048

REACTIONS (1)
  - Drug ineffective for unapproved indication [Recovering/Resolving]

NARRATIVE: CASE EVENT DATE: 201810
